FAERS Safety Report 24060903 (Version 2)
Quarter: 2024Q3

REPORT INFORMATION
  Report Type: Spontaneous
  Country: US (occurrence: US)
  Receive Date: 20240708
  Receipt Date: 20240710
  Transmission Date: 20241016
  Serious: No
  Sender: ROCHE
  Company Number: US-ROCHE-10000014976

PATIENT
  Age: 35 Year

DRUGS (1)
  1. XOLAIR [Suspect]
     Active Substance: OMALIZUMAB
     Indication: Product used for unknown indication
     Route: 065

REACTIONS (6)
  - Urticaria [Unknown]
  - Nausea [Unknown]
  - Abdominal pain [Unknown]
  - Pain in extremity [Unknown]
  - Pain in extremity [Unknown]
  - Neuralgia [Unknown]
